FAERS Safety Report 8105518-6 (Version None)
Quarter: 2012Q1

REPORT INFORMATION
  Report Type: 
  Country: None (occurrence: None)
  Receive Date: 20120201
  Receipt Date: 20120128
  Transmission Date: 20120608
  Serious: Yes (Other)
  Sender: FDA-Public Use
  Company Number: US-PFIZER INC-2012023629

PATIENT
  Sex: Male
  Weight: 86.168 kg

DRUGS (1)
  1. ADVIL COLD AND SINUS [Suspect]
     Indication: NASOPHARYNGITIS
     Dosage: ONE TABLET EVERY SIX HOUR
     Route: 048
     Dates: start: 20120101, end: 20120101

REACTIONS (3)
  - HAEMATOCHEZIA [None]
  - ABDOMINAL PAIN UPPER [None]
  - FAECES DISCOLOURED [None]
